FAERS Safety Report 10254507 (Version 1)
Quarter: 2014Q2

REPORT INFORMATION
  Report Type: Spontaneous
  Country: GB (occurrence: GB)
  Receive Date: 20140624
  Receipt Date: 20140624
  Transmission Date: 20141212
  Serious: Yes (Death)
  Sender: FDA-Public Use
  Company Number: GB-SUN PHARMACEUTICAL INDUSTRIES LTD-2014SUN01368

PATIENT
  Age: 67 Year
  Sex: Female

DRUGS (1)
  1. RILUZOLE SUN 50 MG FILM-COATED TABLETS [Suspect]
     Indication: MOTOR NEURONE DISEASE
     Route: 065

REACTIONS (1)
  - Death [Fatal]
